FAERS Safety Report 8172795 (Version 4)
Quarter: 2014Q1

REPORT INFORMATION
  Report Type: Spontaneous
  Country: US (occurrence: US)
  Receive Date: 20111007
  Receipt Date: 20140127
  Transmission Date: 20141002
  Serious: Yes (Hospitalization)
  Sender: FDA-Public Use
  Company Number: US-GLAXOSMITHKLINE-B0752909A

PATIENT
  Age: 44 Year
  Sex: Male
  Weight: 101.4 kg

DRUGS (2)
  1. AVANDIA [Suspect]
     Indication: DIABETES MELLITUS
     Dosage: 4MG TWICE PER DAY
     Route: 048
     Dates: start: 2005, end: 20070418
  2. AVANDAMET [Suspect]
     Indication: DIABETES MELLITUS
     Route: 048
     Dates: start: 2004, end: 2005

REACTIONS (2)
  - Cardiac failure congestive [Not Recovered/Not Resolved]
  - Chest pain [Unknown]
